FAERS Safety Report 12553375 (Version 3)
Quarter: 2016Q3

REPORT INFORMATION
  Report Type: Spontaneous
  Country: US (occurrence: US)
  Receive Date: 20160713
  Receipt Date: 20160809
  Transmission Date: 20161109
  Serious: Yes (Other)
  Sender: FDA-Public Use
  Company Number: US-BAYER-2016-136684

PATIENT
  Age: 28 Year
  Sex: Female

DRUGS (1)
  1. MIRENA [Suspect]
     Active Substance: LEVONORGESTREL
     Indication: CONTRACEPTION
     Dosage: 20 MCG/24HR, CONT
     Route: 015
     Dates: start: 20160224, end: 20160318

REACTIONS (9)
  - Abdominal pain lower [Unknown]
  - Mobility decreased [None]
  - Device defective [None]
  - Device expulsion [None]
  - Pain [Recovered/Resolved]
  - Genital haemorrhage [Recovered/Resolved]
  - Migraine [Recovered/Resolved]
  - Medical device discomfort [Unknown]
  - Discomfort [Recovered/Resolved]

NARRATIVE: CASE EVENT DATE: 2016
